FAERS Safety Report 12248280 (Version 1)
Quarter: 2016Q2

REPORT INFORMATION
  Report Type: Spontaneous
  Country: US (occurrence: None)
  Receive Date: 20160407
  Receipt Date: 20160407
  Transmission Date: 20160815
  Serious: No
  Sender: FDA-Public Use
  Company Number: None

PATIENT
  Age: 67 Year
  Sex: Male

DRUGS (12)
  1. BLYCOLAX [Concomitant]
  2. METHADONE [Concomitant]
     Active Substance: METHADONE HYDROCHLORIDE
  3. FUROSEMIDE. [Concomitant]
     Active Substance: FUROSEMIDE
  4. SULINDAC. [Concomitant]
     Active Substance: SULINDAC
  5. PREDNISONE. [Concomitant]
     Active Substance: PREDNISONE
  6. ONDANSETRON [Concomitant]
     Active Substance: ONDANSETRON
  7. ZYTIGA [Suspect]
     Active Substance: ABIRATERONE ACETATE
     Indication: PROSTATE CANCER
     Route: 048
     Dates: start: 20140405
  8. CLONIDINE. [Concomitant]
     Active Substance: CLONIDINE
  9. CALCIUM [Concomitant]
     Active Substance: CALCIUM
  10. HCTZ/TRIAM [Concomitant]
  11. VITAMIN D [Concomitant]
     Active Substance: CHOLECALCIFEROL
  12. FOLIC ACID. [Concomitant]
     Active Substance: FOLIC ACID

REACTIONS (5)
  - Dyspnoea [None]
  - Ulcer haemorrhage [None]
  - Gait disturbance [None]
  - Red blood cell count decreased [None]
  - Peripheral swelling [None]

NARRATIVE: CASE EVENT DATE: 201602
